FAERS Safety Report 21224384 (Version 1)
Quarter: 2022Q3

REPORT INFORMATION
  Report Type: Spontaneous
  Country: US (occurrence: US)
  Receive Date: 20220817
  Receipt Date: 20220817
  Transmission Date: 20221026
  Serious: No
  Sender: FDA-Public Use
  Company Number: US-JNJFOC-20220826768

PATIENT
  Sex: Female

DRUGS (1)
  1. PONVORY [Suspect]
     Active Substance: PONESIMOD
     Indication: Relapsing multiple sclerosis
     Route: 048

REACTIONS (3)
  - Myalgia [Unknown]
  - Hot flush [Unknown]
  - Pain in extremity [Unknown]
